FAERS Safety Report 9289847 (Version 4)
Quarter: 2013Q2

REPORT INFORMATION
  Report Type: Report from Study
  Country: CO (occurrence: CO)
  Receive Date: 20130515
  Receipt Date: 20130621
  Transmission Date: 20140414
  Serious: Yes (Hospitalization, Other)
  Sender: FDA-Public Use
  Company Number: CO-ROCHE-1224125

PATIENT
  Age: 54 Year
  Sex: Female
  Weight: 63 kg

DRUGS (6)
  1. LUCENTIS [Suspect]
     Indication: DIABETIC RETINAL OEDEMA
     Route: 050
     Dates: start: 20130307, end: 20130307
  2. LOVASTATIN [Concomitant]
  3. LOSARTAN [Concomitant]
  4. ASPIRIN [Concomitant]
  5. GLIBENCLAMIDE [Concomitant]
  6. METFORMIN HYDROCHLORIDE [Concomitant]

REACTIONS (2)
  - Eye haemorrhage [Recovered/Resolved]
  - Haemorrhage [Recovered/Resolved]
